FAERS Safety Report 23466308 (Version 1)
Quarter: 2024Q1

REPORT INFORMATION
  Report Type: Spontaneous
  Country: US (occurrence: None)
  Receive Date: 20240131
  Receipt Date: 20240131
  Transmission Date: 20240409
  Serious: Yes (Death)
  Sender: FDA-Public Use
  Company Number: None

PATIENT
  Age: 33 Year
  Sex: Male

DRUGS (16)
  1. TACROLIMUS [Suspect]
     Active Substance: TACROLIMUS
     Dosage: FREQUENCY : TWICE A DAY;?
     Route: 048
     Dates: start: 20231107
  2. TACROLIMUS [Suspect]
     Active Substance: TACROLIMUS
     Dosage: FREQUENCY : TWICE A DAY;?
     Route: 048
     Dates: start: 20231107
  3. MYCOPHENOLIC ACID [Concomitant]
     Active Substance: MYCOPHENOLIC ACID
  4. ACYCLOVIR [Concomitant]
     Active Substance: ACYCLOVIR
  5. ATOVAQUONE [Concomitant]
     Active Substance: ATOVAQUONE
  6. CYCLOSPORINE [Concomitant]
     Active Substance: CYCLOSPORINE
  7. CYCLOSPORINE [Concomitant]
     Active Substance: CYCLOSPORINE
  8. GABAPENTIN [Concomitant]
     Active Substance: GABAPENTIN
  9. LEVOFLOXACIN [Concomitant]
     Active Substance: LEVOFLOXACIN
  10. METFORMIN [Concomitant]
     Active Substance: METFORMIN HYDROCHLORIDE
  11. MG PLUS PROTEIN [Concomitant]
  12. ONDANSETRON [Concomitant]
     Active Substance: ONDANSETRON
  13. URSODIOL [Concomitant]
     Active Substance: URSODIOL
  14. VORICONAZOLE [Concomitant]
     Active Substance: VORICONAZOLE
  15. FOLIC ACID [Concomitant]
     Active Substance: FOLIC ACID
  16. Jadennu [Concomitant]

REACTIONS (1)
  - Death [None]

NARRATIVE: CASE EVENT DATE: 20240124
